FAERS Safety Report 12579099 (Version 2)
Quarter: 2016Q4

REPORT INFORMATION
  Report Type: Spontaneous
  Country: FI (occurrence: FR)
  Receive Date: 20160721
  Receipt Date: 20161103
  Transmission Date: 20170207
  Serious: Yes (Other)
  Sender: FDA-Public Use
  Company Number: FI-TOLMAR, INC.-2016FR006895

PATIENT
  Age: 92 Year
  Sex: Male

DRUGS (2)
  1. ELIGARD [Suspect]
     Active Substance: LEUPROLIDE ACETATE
     Indication: PRODUCT USED FOR UNKNOWN INDICATION
     Dosage: 45 MG, UNK
     Dates: start: 201605
  2. MAREVAN [Concomitant]
     Active Substance: WARFARIN SODIUM

REACTIONS (3)
  - Furuncle [Not Recovered/Not Resolved]
  - Carbuncle [Not Recovered/Not Resolved]
  - Injection site abscess [Not Recovered/Not Resolved]

NARRATIVE: CASE EVENT DATE: 20160527
